FAERS Safety Report 16754492 (Version 1)
Quarter: 2019Q3

REPORT INFORMATION
  Report Type: Spontaneous
  Country: NZ (occurrence: NZ)
  Receive Date: 20190829
  Receipt Date: 20190829
  Transmission Date: 20191005
  Serious: Yes (Hospitalization)
  Sender: FDA-Public Use
  Company Number: NZ-ABBVIE-19K-118-2904764-00

PATIENT
  Sex: Female

DRUGS (2)
  1. MAVIRET [Suspect]
     Active Substance: GLECAPREVIR\PIBRENTASVIR
     Indication: PRODUCT USED FOR UNKNOWN INDICATION
     Route: 048
  2. MAVIRET [Suspect]
     Active Substance: GLECAPREVIR\PIBRENTASVIR
     Route: 048
     Dates: start: 2019

REACTIONS (1)
  - Appendicitis [Unknown]
